FAERS Safety Report 5283376-5 (Version None)
Quarter: 2007Q1

REPORT INFORMATION
  Report Type: 
  Country: None (occurrence: None)
  Receive Date: 20070328
  Receipt Date: 20070328
  Transmission Date: 20070707
  Serious: Yes (Hospitalization, Other)
  Sender: FDA-Public Use
  Company Number: None

PATIENT
  Age: 42 Year
  Sex: Female
  Weight: 77.1115 kg

DRUGS (2)
  1. RISPERDAL [Suspect]
     Dosage: 1 MG  2X/DAY  ORAL
     Route: 048
     Dates: start: 20070101, end: 20070201
  2. . [Concomitant]

REACTIONS (6)
  - DIZZINESS [None]
  - EPISTAXIS [None]
  - HEADACHE [None]
  - MYALGIA [None]
  - PARAESTHESIA [None]
  - VISION BLURRED [None]
